FAERS Safety Report 5283745-3 (Version None)
Quarter: 2007Q2

REPORT INFORMATION
  Report Type: 
  Country: None (occurrence: None)
  Receive Date: 20070402
  Receipt Date: 20070327
  Transmission Date: 20071010
  Serious: Yes (Other)
  Sender: FDA-Public Use
  Company Number: 2006UW19079

PATIENT
  Age: 47 Year
  Sex: Female
  Weight: 81.6 kg

DRUGS (8)
  1. ARIMIDEX [Suspect]
     Indication: BREAST CANCER STAGE III
     Route: 048
     Dates: start: 20030101
  2. SYNTHROID [Concomitant]
  3. PAXIL [Concomitant]
  4. LOPRESSOR [Concomitant]
     Dosage: 50/25
  5. ACTONEL [Concomitant]
  6. CALCIUM + VITAMIN D [Concomitant]
  7. M.V.I. [Concomitant]
  8. XANAX [Concomitant]

REACTIONS (9)
  - ARTHRALGIA [None]
  - BLOOD CHOLESTEROL INCREASED [None]
  - BLOOD PRESSURE INCREASED [None]
  - BLOOD TRIGLYCERIDES INCREASED [None]
  - DIABETES MELLITUS [None]
  - HYPERTENSION [None]
  - LOW DENSITY LIPOPROTEIN INCREASED [None]
  - TRIGGER FINGER [None]
  - WEIGHT INCREASED [None]
